FAERS Safety Report 10100557 (Version 2)
Quarter: 2014Q2

REPORT INFORMATION
  Report Type: Spontaneous
  Country: RU (occurrence: RU)
  Receive Date: 20140423
  Receipt Date: 20140527
  Transmission Date: 20141212
  Serious: Yes (Hospitalization)
  Sender: FDA-Public Use
  Company Number: RU-VIIV HEALTHCARE LIMITED-B0987380A

PATIENT
  Sex: Female

DRUGS (6)
  1. INVIRASE [Suspect]
     Indication: HIV INFECTION
     Route: 065
     Dates: end: 2013
  2. ATAZANAVIR [Suspect]
     Indication: HIV INFECTION
     Route: 065
     Dates: start: 2013, end: 2013
  3. INTELENCE [Suspect]
     Indication: HIV INFECTION
     Route: 065
     Dates: start: 2013
  4. DARUNAVIR [Concomitant]
  5. COMBIVIR [Suspect]
     Indication: HIV INFECTION
     Route: 065
  6. RITONAVIR [Suspect]
     Indication: HIV INFECTION
     Route: 065
     Dates: end: 2013

REACTIONS (6)
  - Poisoning [Recovered/Resolved]
  - Abdominal pain [Recovered/Resolved]
  - Diarrhoea [Recovered/Resolved]
  - Rash [Recovered/Resolved]
  - Yellow skin [Recovered/Resolved]
  - Exposure during pregnancy [Unknown]
